FAERS Safety Report 14613415 (Version 1)
Quarter: 2018Q1

REPORT INFORMATION
  Report Type: Spontaneous
  Country: US (occurrence: US)
  Receive Date: 20180308
  Receipt Date: 20180308
  Transmission Date: 20180509
  Serious: Yes (Hospitalization)
  Sender: FDA-Public Use
  Company Number: None

PATIENT
  Age: 64 Year
  Sex: Male

DRUGS (4)
  1. TACROLIMUS  1MG [Suspect]
     Active Substance: TACROLIMUS
     Route: 048
     Dates: start: 20130222
  2. POTASSIUM [Concomitant]
     Active Substance: POTASSIUM
  3. MYCOPHENOLATE 500 MG [Suspect]
     Active Substance: MYCOPHENOLATE MOFETIL
     Route: 048
     Dates: start: 20121002
  4. FUROSEMIDE. [Concomitant]
     Active Substance: FUROSEMIDE

REACTIONS (2)
  - Drug dose omission [None]
  - Influenza [None]

NARRATIVE: CASE EVENT DATE: 20180213
